FAERS Safety Report 7358355-4 (Version None)
Quarter: 2011Q1

REPORT INFORMATION
  Report Type: 
  Country: None (occurrence: None)
  Receive Date: 20110314
  Receipt Date: 20110314
  Transmission Date: 20110831
  Serious: No
  Sender: FDA-Public Use
  Company Number: None

PATIENT
  Age: 50 Year
  Sex: Female
  Weight: 101.1521 kg

DRUGS (1)
  1. BETASERON [Suspect]
     Indication: MULTIPLE SCLEROSIS
     Dosage: 1ML EVERY OTHER DAY SQ
     Route: 058
     Dates: start: 20110218, end: 20110303

REACTIONS (7)
  - MUSCULOSKELETAL STIFFNESS [None]
  - PRURITUS [None]
  - BLOOD PRESSURE INCREASED [None]
  - NASAL CONGESTION [None]
  - DIZZINESS [None]
  - DYSPNOEA [None]
  - HEADACHE [None]
